FAERS Safety Report 7609288-7 (Version None)
Quarter: 2011Q3

REPORT INFORMATION
  Report Type: 
  Country: None (occurrence: None)
  Receive Date: 20110713
  Receipt Date: 20110713
  Transmission Date: 20111222
  Serious: Yes (Hospitalization, Other)
  Sender: FDA-Public Use
  Company Number: None

PATIENT
  Age: 67 Year
  Sex: Male
  Weight: 84.1 kg

DRUGS (2)
  1. BACLOFEN [Suspect]
     Indication: MUSCLE SPASMS
     Dosage: 40 MG 6 HRS
     Dates: start: 20110608, end: 20110610
  2. BACLOFEN [Suspect]
     Indication: NERVE COMPRESSION
     Dosage: 40 MG 6 HRS
     Dates: start: 20110608, end: 20110610

REACTIONS (5)
  - HALLUCINATION [None]
  - PARANOIA [None]
  - DYSARTHRIA [None]
  - AMNESIA [None]
  - IMPAIRED REASONING [None]
